FAERS Safety Report 22176020 (Version 1)
Quarter: 2023Q2

REPORT INFORMATION
  Report Type: Spontaneous
  Country: PT (occurrence: PT)
  Receive Date: 20230405
  Receipt Date: 20230405
  Transmission Date: 20230722
  Serious: Yes (Disabling, Other)
  Sender: FDA-Public Use
  Company Number: PT-BAYER-2023A044461

PATIENT
  Age: 50 Year
  Sex: Male

DRUGS (1)
  1. NAPROXEN SODIUM [Suspect]
     Active Substance: NAPROXEN SODIUM
     Indication: Back pain
     Dosage: UNK
     Dates: start: 2019, end: 2019

REACTIONS (2)
  - Cerebrovascular accident [Recovered/Resolved with Sequelae]
  - Hemiplegia [Not Recovered/Not Resolved]

NARRATIVE: CASE EVENT DATE: 20190101
